FAERS Safety Report 25086995 (Version 1)
Quarter: 2025Q1

REPORT INFORMATION
  Report Type: Spontaneous
  Country: US (occurrence: US)
  Receive Date: 20250318
  Receipt Date: 20250318
  Transmission Date: 20250409
  Serious: No
  Sender: BIOCON
  Company Number: US-BIOCON-BCN-2025-000073

PATIENT
  Age: 76 Year
  Sex: Female
  Weight: 65.77 kg

DRUGS (1)
  1. ROSUVASTATIN CALCIUM [Suspect]
     Active Substance: ROSUVASTATIN CALCIUM
     Indication: Blood cholesterol abnormal
     Dosage: 01 TABLET A DAY

REACTIONS (1)
  - Blood calcium increased [Not Recovered/Not Resolved]
